FAERS Safety Report 10311005 (Version 2)
Quarter: 2014Q4

REPORT INFORMATION
  Report Type: Spontaneous
  Country: JP (occurrence: JP)
  Receive Date: 20140717
  Receipt Date: 20141113
  Transmission Date: 20150528
  Serious: Yes (Death, Hospitalization, Other)
  Sender: FDA-Public Use
  Company Number: PHHY2011JP120867

PATIENT
  Age: 61 Year
  Sex: Male

DRUGS (4)
  1. SANDOSTATIN [Suspect]
     Active Substance: OCTREOTIDE ACETATE
     Indication: MALIGNANT ASCITES
     Dosage: 300 MG, UNK
     Route: 058
     Dates: start: 201010
  2. FENTANYL. [Concomitant]
     Active Substance: FENTANYL
     Indication: PRODUCT USED FOR UNKNOWN INDICATION
     Route: 065
  3. SANDOSTATIN [Suspect]
     Active Substance: OCTREOTIDE ACETATE
     Indication: OFF LABEL USE
  4. OXYCODONE [Concomitant]
     Active Substance: OXYCODONE
     Indication: PRODUCT USED FOR UNKNOWN INDICATION
     Route: 065

REACTIONS (6)
  - Pyrexia [Recovering/Resolving]
  - Vomiting [Recovering/Resolving]
  - Pneumonia aspiration [Unknown]
  - Pneumonia [Recovering/Resolving]
  - Malignant ascites [Fatal]
  - Abdominal pain [Recovering/Resolving]
